FAERS Safety Report 17993751 (Version 3)
Quarter: 2020Q3

REPORT INFORMATION
  Report Type: Spontaneous
  Country: BE (occurrence: BE)
  Receive Date: 20200708
  Receipt Date: 20200721
  Transmission Date: 20201103
  Serious: Yes (Life-Threatening)
  Sender: FDA-Public Use
  Company Number: NVSC2020BE190264

PATIENT
  Age: 65 Year
  Sex: Male

DRUGS (12)
  1. HYDROXYCHLOROQUINE [Suspect]
     Active Substance: HYDROXYCHLOROQUINE
     Dosage: 400 MG, QD AT 8H
     Route: 048
     Dates: start: 20200320
  2. HYDROXYCHLOROQUINE [Suspect]
     Active Substance: HYDROXYCHLOROQUINE
     Dosage: 200 MG, QD AT 20H
     Route: 048
     Dates: start: 20200320
  3. AUGMENTIN [Concomitant]
     Active Substance: AMOXICILLIN\CLAVULANATE POTASSIUM
     Indication: PRODUCT USED FOR UNKNOWN INDICATION
     Dosage: 1 G Q4D IV
     Route: 042
  4. ZANIDIP [Concomitant]
     Active Substance: LERCANIDIPINE HYDROCHLORIDE
     Indication: PRODUCT USED FOR UNKNOWN INDICATION
     Dosage: 10 MG, QD J PER OS
     Route: 048
  5. AZITHROMYCIN ANHYDROUS. [Suspect]
     Active Substance: AZITHROMYCIN ANHYDROUS
     Indication: COVID-19
     Dosage: UNK
     Route: 065
     Dates: start: 202003
  6. CLARITHROMYCINE [Concomitant]
     Active Substance: CLARITHROMYCIN
     Indication: PRODUCT USED FOR UNKNOWN INDICATION
     Dosage: 500 MG, BID J PER OS
     Route: 048
  7. METFORMINE [Concomitant]
     Active Substance: METFORMIN HYDROCHLORIDE
     Indication: PRODUCT USED FOR UNKNOWN INDICATION
     Dosage: 500 MG, TID J PER OS
     Route: 048
  8. HYDROXYCHLOROQUINE [Suspect]
     Active Substance: HYDROXYCHLOROQUINE
     Dosage: 200 MG, QD AT 8H
     Route: 048
     Dates: start: 20200321, end: 20200324
  9. HYDROXYCHLOROQUINE [Suspect]
     Active Substance: HYDROXYCHLOROQUINE
     Dosage: 200 MG, QD AT 20H
     Route: 048
     Dates: start: 20200321, end: 20200323
  10. HYDROXYCHLOROQUINE [Suspect]
     Active Substance: HYDROXYCHLOROQUINE
     Indication: COVID-19
     Dosage: 400 MG, QD AT 20H
     Route: 048
     Dates: start: 20200319
  11. HYDROXYCHLOROQUINE [Suspect]
     Active Substance: HYDROXYCHLOROQUINE
     Dosage: UNK
     Route: 048
  12. JANUVIA [Concomitant]
     Active Substance: SITAGLIPTIN PHOSPHATE
     Indication: PRODUCT USED FOR UNKNOWN INDICATION
     Dosage: 100 MG, QD J PER OS
     Route: 048

REACTIONS (6)
  - Product use in unapproved indication [Unknown]
  - Off label use [Unknown]
  - Toxicity to various agents [Unknown]
  - Acute kidney injury [Not Recovered/Not Resolved]
  - Renal ischaemia [Unknown]
  - Haemolysis [Recovering/Resolving]

NARRATIVE: CASE EVENT DATE: 202003
